FAERS Safety Report 6879317-7 (Version None)
Quarter: 2010Q3

REPORT INFORMATION
  Report Type: 
  Country: None (occurrence: None)
  Receive Date: 20100728
  Receipt Date: 20100716
  Transmission Date: 20110219
  Serious: Yes (Other)
  Sender: FDA-Public Use
  Company Number: US-SANOFI-AVENTIS-2010SA042681

PATIENT
  Age: 74 Year
  Sex: Male

DRUGS (2)
  1. UROXATRAL [Suspect]
     Route: 048
  2. ALL OTHER THERAPEUTIC PRODUCTS [Concomitant]

REACTIONS (3)
  - DYSPHAGIA [None]
  - LUNG NEOPLASM MALIGNANT [None]
  - VOMITING [None]
